FAERS Safety Report 6099812-0 (Version None)
Quarter: 2009Q1

REPORT INFORMATION
  Report Type: 
  Country: None (occurrence: None)
  Receive Date: 20090303
  Receipt Date: 20090219
  Transmission Date: 20090719
  Serious: Yes (Hospitalization, Other)
  Sender: FDA-Public Use
  Company Number: PHEH2007US11162

PATIENT
  Sex: Female
  Weight: 58.957 kg

DRUGS (28)
  1. ZOMETA [Suspect]
     Dosage: 4 MG, QW3
     Dates: start: 20040310
  2. AREDIA [Suspect]
  3. FOSAMAX [Suspect]
     Dosage: 70 MG, UNK
     Dates: start: 20040101
  4. BEXTRA [Concomitant]
     Dosage: 20 MG, UNK
     Dates: start: 20040101
  5. CELEBREX [Concomitant]
     Dosage: 100 MG, UNK
     Dates: start: 20040101
  6. NEURONTIN [Concomitant]
     Dosage: 300 MG, UNK
     Dates: start: 20040101
  7. PROTONIX [Concomitant]
     Dosage: 40 MG, UNK
     Dates: start: 20040101
  8. DEXAMETHASONE [Concomitant]
     Dosage: 4 MG, UNK
     Dates: start: 20040101
  9. PROVIGIL [Concomitant]
     Dosage: 100 MG, UNK
     Dates: start: 20040101
  10. BIAXIN [Concomitant]
     Dosage: 250 MG, UNK
     Dates: start: 20040101
  11. LEVAQUIN [Concomitant]
     Dosage: 500 MG, UNK
     Dates: start: 20040101
  12. CLINDAMYCIN HCL [Concomitant]
     Dosage: 300 MG, UNK
     Dates: start: 20050101
  13. WARFARIN SODIUM [Concomitant]
     Dosage: 1 MG, UNK
     Dates: start: 20050101
  14. MORPHINE SULFATE [Concomitant]
     Dosage: 100 MG, UNK
     Dates: start: 20050101
  15. HYDROMORPHONE HCL [Concomitant]
     Dosage: 4 MG, UNK
     Dates: start: 20060101
  16. PREVACID [Concomitant]
     Dosage: 30 MG, UNK
     Dates: start: 20060101
  17. NEXIUM [Concomitant]
     Dosage: 40 MG, UNK
     Dates: start: 20070101
  18. OXYCONTIN [Concomitant]
  19. MS CONTIN [Concomitant]
  20. TAXOTERE [Concomitant]
  21. CARBOPLATIN [Concomitant]
  22. PROCRIT                            /00909301/ [Concomitant]
  23. FASLODEX [Concomitant]
  24. LIDODERM [Concomitant]
     Route: 062
  25. LASIX [Concomitant]
  26. DILAUDID [Concomitant]
  27. POTASSIUM CHLORIDE [Concomitant]
  28. FEOSOL [Concomitant]
     Indication: MINERAL SUPPLEMENTATION

REACTIONS (32)
  - ADRENAL DISORDER [None]
  - ANAEMIA OF MALIGNANT DISEASE [None]
  - ASTHENIA [None]
  - BONE DISORDER [None]
  - BONE PAIN [None]
  - BREAST CANCER STAGE IV [None]
  - COMPRESSION FRACTURE [None]
  - DECREASED INTEREST [None]
  - DISABILITY [None]
  - DYSPNOEA [None]
  - ECONOMIC PROBLEM [None]
  - EMOTIONAL DISTRESS [None]
  - FALL [None]
  - GINGIVAL ULCERATION [None]
  - IRON DEFICIENCY ANAEMIA [None]
  - LETHARGY [None]
  - LEUKOPENIA [None]
  - MENTAL STATUS CHANGES [None]
  - METASTASES TO BONE [None]
  - METASTATIC PAIN [None]
  - MULTIPLE INJURIES [None]
  - MUSCULOSKELETAL PAIN [None]
  - ORAL CAVITY FISTULA [None]
  - ORAL DISCHARGE [None]
  - OSTEOARTHRITIS [None]
  - OSTEONECROSIS [None]
  - PAIN [None]
  - PHYSICAL DISABILITY [None]
  - RHINORRHOEA [None]
  - ROUTINE HEALTH MAINTENANCE [None]
  - SINUSITIS [None]
  - THROMBOCYTHAEMIA [None]
